FAERS Safety Report 24630737 (Version 1)
Quarter: 2024Q4

REPORT INFORMATION
  Report Type: Spontaneous
  Country: US (occurrence: US)
  Receive Date: 20241118
  Receipt Date: 20241118
  Transmission Date: 20250115
  Serious: No
  Sender: CSL BEHRING
  Company Number: US-BEH-2024183530

PATIENT
  Sex: Female

DRUGS (1)
  1. HIZENTRA [Suspect]
     Active Substance: HUMAN IMMUNOGLOBULIN G
     Indication: Primary immunodeficiency syndrome
     Route: 058

REACTIONS (3)
  - Migraine [Unknown]
  - Wrong technique in product usage process [Unknown]
  - Therapy interrupted [Unknown]
